FAERS Safety Report 6303934-6 (Version None)
Quarter: 2009Q3

REPORT INFORMATION
  Report Type: 
  Country: None (occurrence: None)
  Receive Date: 20090810
  Receipt Date: 20090810
  Transmission Date: 20100115
  Serious: Yes (Life-Threatening, Disabling, Other)
  Sender: FDA-Public Use
  Company Number: None

PATIENT
  Age: 68 Year
  Sex: Male
  Weight: 77.1115 kg

DRUGS (1)
  1. ULTRAM [Suspect]
     Indication: PAIN
     Dosage: 50 MG.  5 TIMES DAILY
     Dates: start: 20090714, end: 20090719

REACTIONS (5)
  - COMA [None]
  - HALLUCINATION [None]
  - LETHARGY [None]
  - REFUSAL OF TREATMENT BY RELATIVE [None]
  - SOMNOLENCE [None]
